FAERS Safety Report 4377924-7 (Version None)
Quarter: 2004Q2

REPORT INFORMATION
  Report Type: 
  Country: None (occurrence: None)
  Receive Date: 20040601
  Receipt Date: 20040217
  Transmission Date: 20050107
  Serious: No
  Sender: FDA-Public Use
  Company Number: WAES 0402USA01568

PATIENT
  Age: 91 Year
  Sex: Male
  Weight: 62.5964 kg

DRUGS (6)
  1. ZETIA [Suspect]
     Indication: HYPERCHOLESTEROLAEMIA
     Dosage: 10 MG/DAILY/PO
     Route: 048
     Dates: start: 20030410, end: 20031101
  2. BETAPACE [Concomitant]
  3. LUPRON DEPOT [Concomitant]
  4. PRLOSEC [Concomitant]
  5. ASPIRIN [Concomitant]
  6. VITAMIN B COMPLEX CAP [Concomitant]

REACTIONS (1)
  - DIZZINESS [None]
